FAERS Safety Report 18926777 (Version 4)
Quarter: 2022Q1

REPORT INFORMATION
  Report Type: Report from Study
  Country: BR (occurrence: BR)
  Receive Date: 20210223
  Receipt Date: 20220120
  Transmission Date: 20220424
  Serious: Yes (Other)
  Sender: FDA-Public Use
  Company Number: NVSC2021BR016287

PATIENT
  Age: 31 Year
  Sex: Female
  Weight: 52 kg

DRUGS (8)
  1. COSENTYX [Suspect]
     Active Substance: SECUKINUMAB
     Indication: Psoriatic arthropathy
     Dosage: 300 MG, QMO (WAS DOING THE ATTACK DOSES)
     Route: 058
     Dates: start: 20210113
  2. COSENTYX [Suspect]
     Active Substance: SECUKINUMAB
  3. NACTALI [Concomitant]
     Indication: Contraception
     Dosage: 1 DF (STARTED 5 YEARS AGO)
     Route: 048
  4. CORTAX [Concomitant]
     Indication: Arthritis
     Dosage: 1 DOSAGE FORM, QD
     Route: 048
     Dates: start: 20210729, end: 20210808
  5. DEXILANT [Concomitant]
     Active Substance: DEXLANSOPRAZOLE
     Indication: Gastritis
     Dosage: 1 DOSAGE FORM, QD
     Route: 048
     Dates: start: 20210202
  6. PRELONE [Concomitant]
     Active Substance: PREDNISOLONE
     Indication: Arthritis
     Dosage: 1 DOSAGE FORM, QD
     Route: 048
     Dates: start: 20210707, end: 20210727
  7. NOVACORT [Concomitant]
     Active Substance: HYDROCORTISONE ACETATE\PRAMOXINE
     Indication: Scab
     Dosage: UNK, QD
     Route: 003
     Dates: start: 20210707
  8. LOXOPROFEN SODIUM [Concomitant]
     Active Substance: LOXOPROFEN SODIUM
     Indication: Arthritis
     Dosage: 1 DOSAGE FORM, TID
     Route: 048
     Dates: start: 20210923, end: 20210930

REACTIONS (18)
  - Granulomatosis with polyangiitis [Not Recovered/Not Resolved]
  - Bronchiectasis [Not Recovered/Not Resolved]
  - Nausea [Recovered/Resolved]
  - Headache [Recovered/Resolved]
  - Feeling abnormal [Recovered/Resolved]
  - Dizziness [Not Recovered/Not Resolved]
  - Back pain [Unknown]
  - Diarrhoea [Not Recovered/Not Resolved]
  - Arthralgia [Recovering/Resolving]
  - Epistaxis [Recovering/Resolving]
  - Contusion [Recovering/Resolving]
  - Ear inflammation [Not Recovered/Not Resolved]
  - Lung disorder [Not Recovered/Not Resolved]
  - Lung opacity [Not Recovered/Not Resolved]
  - Bronchial wall thickening [Not Recovered/Not Resolved]
  - Sinusitis [Recovered/Resolved]
  - Drug administered in wrong device [Unknown]
  - Therapeutic product effect incomplete [Unknown]

NARRATIVE: CASE EVENT DATE: 20210113
